FAERS Safety Report 7720867-9 (Version None)
Quarter: 2011Q3

REPORT INFORMATION
  Report Type: 
  Country: None (occurrence: None)
  Receive Date: 20110825
  Receipt Date: 20110811
  Transmission Date: 20111222
  Serious: Yes (Life-Threatening, Hospitalization)
  Sender: FDA-Public Use
  Company Number: 15939499

PATIENT
  Age: 52 Year
  Sex: Male

DRUGS (7)
  1. SIMVASTATIN [Concomitant]
  2. ENOXAPARIN SODIUM [Suspect]
     Indication: EMBOLISM
     Dosage: 1.44 MILLILITER
     Route: 058
     Dates: start: 20110715
  3. WARFARIN SODIUM [Suspect]
     Indication: EMBOLISM
     Dosage: 4 MILLIGRAM 1 DAY
     Route: 048
     Dates: start: 20110715
  4. PLACEBO [Suspect]
     Indication: EMBOLISM
     Dates: start: 20110715
  5. BISOPROLOL FUMARATE [Concomitant]
  6. APIXABAN [Suspect]
     Indication: EMBOLISM
     Dosage: 10 MILLIGRAM 1 DAY
     Route: 048
     Dates: start: 20110715
  7. MONOSAN (ISOSORBIDE MONONITRATE) [Concomitant]

REACTIONS (1)
  - ISCHAEMIC STROKE [None]
